FAERS Safety Report 5148674-4 (Version None)
Quarter: 2006Q4

REPORT INFORMATION
  Report Type: 
  Country: None (occurrence: None)
  Receive Date: 20061106
  Receipt Date: 20061102
  Transmission Date: 20070319
  Serious: Yes (Hospitalization)
  Sender: FDA-Public Use
  Company Number: FRWYE871607SEP06

PATIENT
  Age: 56 Year
  Sex: Male

DRUGS (5)
  1. RAPAMUNE [Suspect]
     Indication: PROPHYLAXIS AGAINST TRANSPLANT REJECTION
     Dosage: 2 MG TOTAL DAILY;DECREASED DOSAGE;
     Route: 048
     Dates: start: 20060507, end: 20060724
  2. RAPAMUNE [Suspect]
     Indication: PROPHYLAXIS AGAINST TRANSPLANT REJECTION
     Dosage: 2 MG TOTAL DAILY;DECREASED DOSAGE;
     Route: 048
     Dates: start: 20060725, end: 20060730
  3. MYCOPHENOLIC ACID [Suspect]
     Dosage: 360 MG 1X PER 1DAY;DECREASED DOSAGE
     Route: 048
     Dates: start: 20060507, end: 20060724
  4. MYCOPHENOLIC ACID [Suspect]
     Dosage: 360 MG 1X PER 1DAY;DECREASED DOSAGE
     Route: 048
     Dates: start: 20060507, end: 20060724
  5. MYCOPHENOLIC ACID [Suspect]
     Dosage: 360 MG 1X PER 1DAY;DECREASED DOSAGE
     Route: 048
     Dates: start: 20060725

REACTIONS (9)
  - CARDIAC FAILURE [None]
  - CHOLELITHIASIS [None]
  - CHOLESTASIS [None]
  - CYTOLYTIC HEPATITIS [None]
  - FLUID RETENTION [None]
  - HAEMORRHOIDS [None]
  - PYREXIA [None]
  - RENAL HAEMATOMA [None]
  - SODIUM RETENTION [None]
